FAERS Safety Report 7420652-1 (Version None)
Quarter: 2011Q2

REPORT INFORMATION
  Report Type: 
  Country: None (occurrence: None)
  Receive Date: 20110418
  Receipt Date: 20110407
  Transmission Date: 20111010
  Serious: Yes (Hospitalization)
  Sender: FDA-Public Use
  Company Number: US-ROCHE-691693

PATIENT
  Sex: Female
  Weight: 91.4 kg

DRUGS (34)
  1. LIPITOR [Concomitant]
     Dates: start: 20050101
  2. PROPOXYPHENE HYDROCHLORIDE [Concomitant]
     Dosage: TDD: 2 PRN
     Dates: start: 20020101
  3. LISINOPRIL [Concomitant]
     Route: 048
     Dates: start: 20091116
  4. LISINOPRIL [Concomitant]
     Route: 048
  5. NORVASC [Concomitant]
     Route: 048
  6. PREDNISONE [Concomitant]
     Route: 048
  7. CEFTIN [Concomitant]
  8. ASPIRIN [Suspect]
     Indication: CORONARY ARTERY DISEASE
     Route: 065
  9. NORVASC [Concomitant]
     Route: 048
     Dates: start: 20091218
  10. ASPIRIN [Concomitant]
     Dates: start: 20091218
  11. PLAVIX [Suspect]
     Indication: CORONARY ARTERY DISEASE
     Route: 065
  12. LASIX [Concomitant]
     Dates: start: 20081201
  13. POTASSIUM CHLORIDE [Concomitant]
     Route: 048
  14. ARICEPT [Concomitant]
     Dates: start: 20090421
  15. EPINEPHRINE [Concomitant]
     Dates: start: 20100924, end: 20100924
  16. PRILOSEC [Concomitant]
     Route: 048
     Dates: start: 20081201
  17. APRESOLINE [Concomitant]
     Dates: start: 20090319
  18. POTASSIUM CHLORIDE [Concomitant]
     Route: 048
     Dates: start: 20051101
  19. ASCORBIC ACID [Concomitant]
     Dates: start: 20071022
  20. ROCEPHIN [Concomitant]
  21. VANCOMYCIN [Concomitant]
     Dates: start: 20100924, end: 20100924
  22. TOCILIZUMAB [Suspect]
     Indication: RHEUMATOID ARTHRITIS
     Dosage: LAST DOSE PRIOR TO SAE: 24 FEB 2010
     Route: 042
     Dates: start: 20060927, end: 20100317
  23. TOCILIZUMAB [Suspect]
     Dosage: PERMANANTLY DISCONTINUED. LASE DOSE PRIOR TO SAE: 30 JUNE 2010
     Route: 042
     Dates: start: 20100407, end: 20100802
  24. TOCILIZUMAB [Suspect]
     Dosage: PATIENT WAS PREVIOUSLY ENROLLED IN THE STUDY WA18063.
     Route: 042
     Dates: start: 20060411
  25. NIFEDIPINE [Concomitant]
     Dates: start: 20090501
  26. PREDNISONE [Concomitant]
     Route: 048
     Dates: start: 20090703
  27. OMEPRAZOLE [Concomitant]
  28. BENADRYL [Concomitant]
     Dates: start: 20100924, end: 20100924
  29. TORSEMIDE [Concomitant]
  30. METOPROLOL [Concomitant]
     Dates: start: 20091218
  31. ALENDRONATE SODIUM [Concomitant]
     Dates: start: 20090424
  32. PROPRANOLOL [Concomitant]
  33. ZOSYN [Concomitant]
     Dates: start: 20100924, end: 20100924
  34. ZOFRAN [Concomitant]
     Dates: start: 20100924, end: 20100927

REACTIONS (15)
  - UROSEPSIS [None]
  - RED BLOOD CELL COUNT DECREASED [None]
  - HAEMOGLOBIN DECREASED [None]
  - HAEMATOCRIT DECREASED [None]
  - CANDIDIASIS [None]
  - DIVERTICULUM [None]
  - COLITIS ISCHAEMIC [None]
  - DEEP VEIN THROMBOSIS [None]
  - BLOOD CREATININE INCREASED [None]
  - CULTURE STOOL POSITIVE [None]
  - BLOOD UREA INCREASED [None]
  - BLOOD LACTIC ACID INCREASED [None]
  - NEPHROLITHIASIS [None]
  - COLITIS [None]
  - HYPOTENSION [None]
